FAERS Safety Report 9304075 (Version 1)
Quarter: 2013Q2

REPORT INFORMATION
  Report Type: Spontaneous
  Country: FR (occurrence: FR)
  Receive Date: 20130522
  Receipt Date: 20130522
  Transmission Date: 20140414
  Serious: Yes (Other)
  Sender: FDA-Public Use
  Company Number: FR-TEVA-406179ISR

PATIENT
  Age: 57 Year
  Sex: Female

DRUGS (5)
  1. OXALIPLATINE TEVA [Suspect]
     Route: 042
     Dates: start: 20130225, end: 20130315
  2. FLUOROURACIL [Suspect]
     Route: 042
     Dates: start: 20130225, end: 20130315
  3. HALDOL [Suspect]
     Dates: start: 20130408, end: 20130415
  4. IRINOTECAN MYLAN [Suspect]
     Route: 042
     Dates: start: 20130225, end: 20130315
  5. LEVOTHYROX [Concomitant]

REACTIONS (2)
  - Paraesthesia [Not Recovered/Not Resolved]
  - Psychomotor skills impaired [Not Recovered/Not Resolved]
